FAERS Safety Report 6579512-0 (Version None)
Quarter: 2010Q1

REPORT INFORMATION
  Report Type: 
  Country: None (occurrence: None)
  Receive Date: 20100212
  Receipt Date: 20100202
  Transmission Date: 20100710
  Serious: Yes (Death, Other)
  Sender: FDA-Public Use
  Company Number: US-WYE-H13352110

PATIENT
  Sex: Male
  Weight: 87.7 kg

DRUGS (1)
  1. RAPAMUNE [Suspect]
     Route: 048
     Dates: start: 20091015

REACTIONS (3)
  - ANAEMIA [None]
  - DEATH [None]
  - PNEUMONIA [None]
